FAERS Safety Report 6138238-8 (Version None)
Quarter: 2009Q1

REPORT INFORMATION
  Report Type: 
  Country: None (occurrence: None)
  Receive Date: 20090331
  Receipt Date: 20090325
  Transmission Date: 20090719
  Serious: Yes (Hospitalization)
  Sender: FDA-Public Use
  Company Number: A0776219A

PATIENT
  Sex: Female

DRUGS (6)
  1. ADVAIR HFA [Suspect]
     Indication: CHRONIC OBSTRUCTIVE PULMONARY DISEASE
     Route: 055
     Dates: start: 20050101
  2. COMBIVENT [Concomitant]
  3. SINGULAIR [Concomitant]
  4. TAMBOCOR [Concomitant]
  5. NEBIVOLOL [Concomitant]
  6. OXYGEN [Concomitant]

REACTIONS (4)
  - ARRHYTHMIA [None]
  - HEART RATE INCREASED [None]
  - MYOCARDIAL INFARCTION [None]
  - VISUAL IMPAIRMENT [None]
